FAERS Safety Report 5044620-2 (Version None)
Quarter: 2006Q3

REPORT INFORMATION
  Report Type: 
  Country: None (occurrence: None)
  Receive Date: 20060706
  Receipt Date: 20060419
  Transmission Date: 20061208
  Serious: Yes (Death, Hospitalization, Other)
  Sender: FDA-Public Use
  Company Number: US-BRISTOL-MYERS SQUIBB COMPANY-13352711

PATIENT
  Age: 56 Year
  Sex: Male

DRUGS (20)
  1. TAXOL [Suspect]
     Indication: NON-SMALL CELL LUNG CANCER
     Route: 042
     Dates: start: 20060228, end: 20060407
  2. PARAPLATIN [Suspect]
     Indication: NON-SMALL CELL LUNG CANCER
     Route: 042
     Dates: start: 20060228, end: 20060407
  3. KYTRIL [Concomitant]
  4. DECADRON [Concomitant]
  5. TAGAMET [Concomitant]
  6. BENADRYL [Concomitant]
  7. MORPHINE SULFATE [Concomitant]
  8. REGLAN [Concomitant]
  9. METHADONE HCL [Concomitant]
  10. DILAUDID [Concomitant]
  11. VALIUM [Concomitant]
  12. LORTAB [Concomitant]
  13. SENOKOT [Concomitant]
  14. ATIVAN [Concomitant]
  15. RADIATION THERAPY [Concomitant]
     Dates: start: 20060206, end: 20060303
  16. OXYGEN [Concomitant]
  17. ROCEPHIN [Concomitant]
  18. MAALOX FAST BLOCKER [Concomitant]
  19. COMBIVENT [Concomitant]
  20. RADIATION THERAPY [Concomitant]
     Dates: start: 20060206, end: 20060301

REACTIONS (6)
  - ANORECTAL DISORDER [None]
  - HAEMOPTYSIS [None]
  - HAEMORRHOIDS [None]
  - MALIGNANT NEOPLASM PROGRESSION [None]
  - MASS [None]
  - PNEUMONIA [None]
